FAERS Safety Report 7301508-1 (Version None)
Quarter: 2011Q1

REPORT INFORMATION
  Report Type: 
  Country: None (occurrence: None)
  Receive Date: 20110218
  Receipt Date: 20100920
  Transmission Date: 20110831
  Serious: No
  Sender: FDA-Public Use
  Company Number: US-BRISTOL-MYERS SQUIBB COMPANY-15296403

PATIENT
  Age: 33 Year
  Sex: Female

DRUGS (2)
  1. DIMENHYDRINATE [Suspect]
     Indication: URTICARIA
     Dosage: INJECTION
     Route: 030
  2. KENALOG [Suspect]
     Indication: URTICARIA
     Dosage: INJECTION
     Route: 030
     Dates: start: 20100312

REACTIONS (10)
  - INJECTION SITE DISCOLOURATION [None]
  - VISION BLURRED [None]
  - ANAEMIA [None]
  - PALPITATIONS [None]
  - INJECTION SITE ATROPHY [None]
  - WEIGHT DECREASED [None]
  - MOOD SWINGS [None]
  - MENORRHAGIA [None]
  - CONTUSION [None]
  - FUNGAL INFECTION [None]
